FAERS Safety Report 7687072-6 (Version None)
Quarter: 2011Q3

REPORT INFORMATION
  Report Type: 
  Country: None (occurrence: None)
  Receive Date: 20110816
  Receipt Date: 20110804
  Transmission Date: 20111222
  Serious: Yes (Hospitalization)
  Sender: FDA-Public Use
  Company Number: JP-ASTRAZENECA-2011SE41769

PATIENT
  Sex: Male

DRUGS (5)
  1. VANCOMYCIN HYCHLORIDE [Concomitant]
     Indication: SEPSIS
     Dates: start: 20110608, end: 20110609
  2. STANZOME OD [Concomitant]
     Route: 048
     Dates: start: 20110606
  3. MEROPENEM [Suspect]
     Indication: SEPSIS
     Route: 042
     Dates: start: 20110706, end: 20110709
  4. IMMUNE GLOBULIN INTRAVENOUS (HUMAN) [Concomitant]
     Indication: SEPSIS
     Dates: start: 20110607, end: 20110609
  5. RECOMODULIN [Concomitant]
     Indication: DISSEMINATED INTRAVASCULAR COAGULATION
     Dates: start: 20110609, end: 20110615

REACTIONS (1)
  - PNEUMONITIS [None]
